FAERS Safety Report 5836551-2 (Version None)
Quarter: 2008Q3

REPORT INFORMATION
  Report Type: 
  Country: None (occurrence: None)
  Receive Date: 20080801
  Receipt Date: 20080406
  Transmission Date: 20090109
  Serious: No
  Sender: FDA-Public Use
  Company Number: 2008-0519

PATIENT
  Age: 74 Year
  Sex: Female

DRUGS (7)
  1. SOMATULINE DEPOT [Suspect]
     Indication: ACROMEGALY
     Dosage: 60MG(1 IN 4WK),SUBCUT
     Route: 058
     Dates: start: 20080301
  2. METFORMIN HCL [Concomitant]
  3. LEVOXYL [Concomitant]
  4. SIMVASTATIN [Concomitant]
  5. VERAPAMIL [Concomitant]
  6. LISINOPRIL AND HYDROCHLOROTHIAZIDE [Concomitant]
  7. CALCIUM [Concomitant]

REACTIONS (2)
  - BLISTER [None]
  - ERYTHEMA [None]
